FAERS Safety Report 5739197-X (Version None)
Quarter: 2008Q2

REPORT INFORMATION
  Report Type: 
  Country: None (occurrence: None)
  Receive Date: 20080515
  Receipt Date: 20080514
  Transmission Date: 20081010
  Serious: Yes (Hospitalization, Disabling)
  Sender: FDA-Public Use
  Company Number: JP-BRISTOL-MYERS SQUIBB COMPANY-14172787

PATIENT
  Age: 68 Year
  Sex: Female

DRUGS (5)
  1. PARAPLATIN [Suspect]
     Indication: OVARIAN CANCER
     Route: 041
     Dates: start: 20070911, end: 20080108
  2. TAXOL [Suspect]
     Indication: OVARIAN CANCER
     Route: 041
     Dates: start: 20070911, end: 20080108
  3. KYTRIL [Concomitant]
     Route: 041
     Dates: start: 20070911, end: 20080108
  4. DECADRON [Concomitant]
     Route: 041
     Dates: start: 20070911, end: 20080108
  5. ZANTAC [Concomitant]
     Route: 041
     Dates: start: 20070911, end: 20080108

REACTIONS (2)
  - DIPLEGIA [None]
  - HYPOAESTHESIA [None]
